FAERS Safety Report 7310635-4 (Version None)
Quarter: 2011Q1

REPORT INFORMATION
  Report Type: 
  Country: None (occurrence: None)
  Receive Date: 20110224
  Receipt Date: 20100524
  Transmission Date: 20110831
  Serious: No
  Sender: FDA-Public Use
  Company Number: US-BRISTOL-MYERS SQUIBB COMPANY-15121585

PATIENT
  Age: 49 Year
  Sex: Male

DRUGS (4)
  1. GLIPIZIDE [Suspect]
  2. LANTUS [Suspect]
     Indication: TYPE 2 DIABETES MELLITUS
     Dosage: 1DF=50UNITS ALSO PARENTERAL-INJ:100IU/ML
     Route: 058
     Dates: start: 20100401
  3. GLUCOPHAGE [Suspect]
  4. ACTOS [Suspect]

REACTIONS (3)
  - INJECTION SITE PAIN [None]
  - DIABETES MELLITUS INADEQUATE CONTROL [None]
  - INJECTION SITE DISCOMFORT [None]
